FAERS Safety Report 5285846-2 (Version None)
Quarter: 2007Q1

REPORT INFORMATION
  Report Type: 
  Country: None (occurrence: None)
  Receive Date: 20070330
  Receipt Date: 20070319
  Transmission Date: 20070707
  Serious: Yes (Congenital Anomaly, Other)
  Sender: FDA-Public Use
  Company Number: 2007312188

PATIENT

DRUGS (1)
  1. PSEUDOEPHEDRINE HCL [Suspect]
     Dosage: PLACENTAL
     Route: 064

REACTIONS (4)
  - ANGIOPATHY [None]
  - CONGENITAL ANOMALY [None]
  - DRUG EXPOSURE DURING PREGNANCY [None]
  - DYSMORPHISM [None]
